FAERS Safety Report 25501926 (Version 1)
Quarter: 2025Q3

REPORT INFORMATION
  Report Type: Spontaneous
  Country: CA (occurrence: CA)
  Receive Date: 20250702
  Receipt Date: 20250702
  Transmission Date: 20251021
  Serious: Yes (Death, Life-Threatening, Hospitalization, Disabling, Congenital Anomaly, Other)
  Sender: Haleon PLC
  Company Number: CA-HALEON-2249070

PATIENT
  Age: 40 Year
  Sex: Female
  Weight: 96 kg

DRUGS (282)
  1. DICLOFENAC [Suspect]
     Active Substance: DICLOFENAC
     Indication: Product used for unknown indication
  2. TUMS ULTRA [Suspect]
     Active Substance: CALCIUM CARBONATE
     Indication: Product used for unknown indication
  3. ACETAMINOPHEN AND CODEINE [Suspect]
     Active Substance: ACETAMINOPHEN\CODEINE PHOSPHATE
     Indication: Product used for unknown indication
  4. ACTEMRA [Suspect]
     Active Substance: TOCILIZUMAB
     Indication: Product used for unknown indication
  5. ALENDRONATE SODIUM [Suspect]
     Active Substance: ALENDRONATE SODIUM
     Indication: Rheumatoid arthritis
  6. ALENDRONATE SODIUM [Suspect]
     Active Substance: ALENDRONATE SODIUM
     Indication: Product used for unknown indication
  7. ALENDRONATE SODIUM [Suspect]
     Active Substance: ALENDRONATE SODIUM
  8. ALENDRONATE SODIUM [Suspect]
     Active Substance: ALENDRONATE SODIUM
  9. ALENDRONATE SODIUM [Suspect]
     Active Substance: ALENDRONATE SODIUM
  10. ATOMOXETINE HYDROCHLORIDE [Suspect]
     Active Substance: ATOMOXETINE HYDROCHLORIDE
     Indication: Product used for unknown indication
  11. ATOMOXETINE HYDROCHLORIDE [Suspect]
     Active Substance: ATOMOXETINE HYDROCHLORIDE
  12. BERINERT [Suspect]
     Active Substance: HUMAN C1-ESTERASE INHIBITOR
     Indication: Product used for unknown indication
  13. CALCIUM GLUBIONATE [Suspect]
     Active Substance: CALCIUM GLUBIONATE
     Indication: Product used for unknown indication
  14. CANDESARTAN [Suspect]
     Active Substance: CANDESARTAN
     Indication: Migraine
     Route: 048
  15. CETIRIZINE HYDROCHLORIDE [Suspect]
     Active Substance: CETIRIZINE HYDROCHLORIDE
     Indication: Rheumatoid arthritis
  16. CETIRIZINE HYDROCHLORIDE [Suspect]
     Active Substance: CETIRIZINE HYDROCHLORIDE
     Indication: Product used for unknown indication
  17. CETIRIZINE HYDROCHLORIDE [Suspect]
     Active Substance: CETIRIZINE HYDROCHLORIDE
  18. CETIRIZINE HYDROCHLORIDE [Suspect]
     Active Substance: CETIRIZINE HYDROCHLORIDE
  19. CIMZIA [Suspect]
     Active Substance: CERTOLIZUMAB PEGOL
     Indication: Product used for unknown indication
  20. CORTISONE ACETATE [Suspect]
     Active Substance: CORTISONE ACETATE
     Indication: Product used for unknown indication
  21. CUPRIC OXIDE\FOLIC ACID\NIACIN\ZINC OXIDE [Suspect]
     Active Substance: CUPRIC OXIDE\FOLIC ACID\NIACIN\ZINC OXIDE
     Indication: Product used for unknown indication
  22. DESOXIMETASONE [Suspect]
     Active Substance: DESOXIMETASONE
     Indication: Product used for unknown indication
  23. DESOXIMETASONE [Suspect]
     Active Substance: DESOXIMETASONE
  24. ENBREL [Suspect]
     Active Substance: ETANERCEPT
     Indication: Product used for unknown indication
  25. ERELZI [Suspect]
     Active Substance: ETANERCEPT-SZZS
     Indication: Rheumatoid arthritis
  26. ERELZI [Suspect]
     Active Substance: ETANERCEPT-SZZS
  27. ERELZI [Suspect]
     Active Substance: ETANERCEPT-SZZS
  28. ERELZI [Suspect]
     Active Substance: ETANERCEPT-SZZS
  29. ERELZI [Suspect]
     Active Substance: ETANERCEPT-SZZS
  30. ERELZI [Suspect]
     Active Substance: ETANERCEPT-SZZS
     Indication: Rheumatoid arthritis
  31. ERELZI [Suspect]
     Active Substance: ETANERCEPT-SZZS
  32. ERGOCALCIFEROL [Suspect]
     Active Substance: ERGOCALCIFEROL
     Indication: Product used for unknown indication
  33. FLUMETHASONE [Suspect]
     Active Substance: FLUMETHASONE
     Indication: Product used for unknown indication
  34. FLUMETHASONE PIVALATE [Suspect]
     Active Substance: FLUMETHASONE PIVALATE
     Indication: Product used for unknown indication
  35. FLUMETHASONE PIVALATE [Suspect]
     Active Substance: FLUMETHASONE PIVALATE
  36. HYDROXYCHLOROQUINE SULFATE [Suspect]
     Active Substance: HYDROXYCHLOROQUINE SULFATE
     Indication: Rheumatoid arthritis
  37. HYDROXYCHLOROQUINE SULFATE [Suspect]
     Active Substance: HYDROXYCHLOROQUINE SULFATE
  38. HYDROXYCHLOROQUINE SULFATE [Suspect]
     Active Substance: HYDROXYCHLOROQUINE SULFATE
     Dosage: PATIENT ROA - SUBCUTANEOUS
  39. HYDROXYCHLOROQUINE SULFATE [Suspect]
     Active Substance: HYDROXYCHLOROQUINE SULFATE
     Dosage: PATIENT ROA - ORAL
  40. HYDROXYCHLOROQUINE SULFATE [Suspect]
     Active Substance: HYDROXYCHLOROQUINE SULFATE
     Dosage: PATIENT ROA - INTRA-ARTERIAL
  41. HYDROXYCHLOROQUINE SULFATE [Suspect]
     Active Substance: HYDROXYCHLOROQUINE SULFATE
     Dosage: PATIENT ROA -UNKNOWN
  42. HYRIMOZ [Suspect]
     Active Substance: ADALIMUMAB-ADAZ
     Indication: Rheumatoid arthritis
  43. HYRIMOZ [Suspect]
     Active Substance: ADALIMUMAB-ADAZ
  44. HYRIMOZ [Suspect]
     Active Substance: ADALIMUMAB-ADAZ
  45. HYRIMOZ [Suspect]
     Active Substance: ADALIMUMAB-ADAZ
  46. HYRIMOZ [Suspect]
     Active Substance: ADALIMUMAB-ADAZ
  47. HYRIMOZ [Suspect]
     Active Substance: ADALIMUMAB-ADAZ
  48. HYRIMOZ [Suspect]
     Active Substance: ADALIMUMAB-ADAZ
  49. HYRIMOZ [Suspect]
     Active Substance: ADALIMUMAB-ADAZ
     Indication: Rheumatoid arthritis
  50. LAMICTAL [Suspect]
     Active Substance: LAMOTRIGINE
     Indication: Product used for unknown indication
  51. MAGNESIUM CITRATE [Suspect]
     Active Substance: MAGNESIUM CITRATE
     Indication: Product used for unknown indication
  52. MAGNESIUM CITRATE [Suspect]
     Active Substance: MAGNESIUM CITRATE
  53. MAGNESIUM CITRATE [Suspect]
     Active Substance: MAGNESIUM CITRATE
  54. MAGNESIUM CITRATE [Suspect]
     Active Substance: MAGNESIUM CITRATE
  55. MAGNESIUM CITRATE [Suspect]
     Active Substance: MAGNESIUM CITRATE
  56. METFORMIN HYDROCHLORIDE [Suspect]
     Active Substance: METFORMIN HYDROCHLORIDE
     Indication: Product used for unknown indication
  57. METHOTREXATE [Suspect]
     Active Substance: METHOTREXATE
     Indication: Rheumatoid arthritis
  58. METHOTREXATE [Suspect]
     Active Substance: METHOTREXATE
     Dosage: PATIENT ROA - SUBCUTANEOUS
  59. METHOTREXATE [Suspect]
     Active Substance: METHOTREXATE
  60. METHOTREXATE [Suspect]
     Active Substance: METHOTREXATE
  61. METHOTREXATE [Suspect]
     Active Substance: METHOTREXATE
  62. METHOTREXATE [Suspect]
     Active Substance: METHOTREXATE
  63. METHOTREXATE [Suspect]
     Active Substance: METHOTREXATE
  64. METHOTREXATE [Suspect]
     Active Substance: METHOTREXATE
  65. METHOTREXATE [Suspect]
     Active Substance: METHOTREXATE
  66. METHYLPREDNISOLONE ACETATE [Suspect]
     Active Substance: METHYLPREDNISOLONE ACETATE
     Indication: Rheumatoid arthritis
     Route: 058
  67. METHYLPREDNISOLONE ACETATE [Suspect]
     Active Substance: METHYLPREDNISOLONE ACETATE
     Route: 048
  68. METHYLPREDNISOLONE ACETATE [Suspect]
     Active Substance: METHYLPREDNISOLONE ACETATE
     Route: 048
  69. METHYLPREDNISOLONE SODIUM SUCCINATE [Suspect]
     Active Substance: METHYLPREDNISOLONE SODIUM SUCCINATE
     Indication: Product used for unknown indication
  70. METHYLPREDNISOLONE SODIUM SUCCINATE [Suspect]
     Active Substance: METHYLPREDNISOLONE SODIUM SUCCINATE
  71. MINOCYCLINE HYDROCHLORIDE [Suspect]
     Active Substance: MINOCYCLINE HYDROCHLORIDE
     Indication: Product used for unknown indication
  72. MYRBETRIQ [Suspect]
     Active Substance: MIRABEGRON
     Indication: Rheumatoid arthritis
  73. NAPROXEN [Suspect]
     Active Substance: NAPROXEN
     Indication: Product used for unknown indication
  74. NAPROXEN [Suspect]
     Active Substance: NAPROXEN
  75. NAPROXEN [Suspect]
     Active Substance: NAPROXEN
  76. NAPROXEN [Suspect]
     Active Substance: NAPROXEN
  77. NAPROXEN [Suspect]
     Active Substance: NAPROXEN
     Dosage: PATIENT ROA -ORAL
  78. PHTHALYLSULFATHIAZOLE [Suspect]
     Active Substance: PHTHALYLSULFATHIAZOLE
     Indication: Rheumatoid arthritis
     Route: 058
  79. PHTHALYLSULFATHIAZOLE [Suspect]
     Active Substance: PHTHALYLSULFATHIAZOLE
     Indication: Rheumatoid arthritis
  80. PSEUDOEPHEDRINE [Suspect]
     Active Substance: PSEUDOEPHEDRINE
     Indication: Product used for unknown indication
  81. PSEUDOEPHEDRINE HYDROCHLORIDE [Suspect]
     Active Substance: PSEUDOEPHEDRINE HYDROCHLORIDE
     Indication: Rheumatoid arthritis
  82. PSEUDOEPHEDRINE HYDROCHLORIDE [Suspect]
     Active Substance: PSEUDOEPHEDRINE HYDROCHLORIDE
  83. PSEUDOEPHEDRINE HYDROCHLORIDE [Suspect]
     Active Substance: PSEUDOEPHEDRINE HYDROCHLORIDE
  84. PSEUDOEPHEDRINE HYDROCHLORIDE [Suspect]
     Active Substance: PSEUDOEPHEDRINE HYDROCHLORIDE
  85. PSEUDOEPHEDRINE HYDROCHLORIDE [Suspect]
     Active Substance: PSEUDOEPHEDRINE HYDROCHLORIDE
  86. PSEUDOEPHEDRINE HYDROCHLORIDE [Suspect]
     Active Substance: PSEUDOEPHEDRINE HYDROCHLORIDE
  87. PSEUDOEPHEDRINE HYDROCHLORIDE [Suspect]
     Active Substance: PSEUDOEPHEDRINE HYDROCHLORIDE
  88. PSEUDOEPHEDRINE HYDROCHLORIDE [Suspect]
     Active Substance: PSEUDOEPHEDRINE HYDROCHLORIDE
  89. PSEUDOEPHEDRINE HYDROCHLORIDE [Suspect]
     Active Substance: PSEUDOEPHEDRINE HYDROCHLORIDE
  90. PSEUDOEPHEDRINE HYDROCHLORIDE [Suspect]
     Active Substance: PSEUDOEPHEDRINE HYDROCHLORIDE
  91. PSEUDOEPHEDRINE HYDROCHLORIDE [Suspect]
     Active Substance: PSEUDOEPHEDRINE HYDROCHLORIDE
  92. PSEUDOEPHEDRINE HYDROCHLORIDE [Suspect]
     Active Substance: PSEUDOEPHEDRINE HYDROCHLORIDE
     Indication: Rheumatoid arthritis
  93. RANITIDINE HYDROCHLORIDE [Suspect]
     Active Substance: RANITIDINE HYDROCHLORIDE
     Indication: Product used for unknown indication
  94. RANITIDINE HYDROCHLORIDE [Suspect]
     Active Substance: RANITIDINE HYDROCHLORIDE
  95. RANITIDINE HYDROCHLORIDE [Suspect]
     Active Substance: RANITIDINE HYDROCHLORIDE
  96. RANITIDINE HYDROCHLORIDE [Suspect]
     Active Substance: RANITIDINE HYDROCHLORIDE
  97. RANITIDINE HYDROCHLORIDE [Suspect]
     Active Substance: RANITIDINE HYDROCHLORIDE
  98. RITUXIMAB [Suspect]
     Active Substance: RITUXIMAB
     Indication: Rheumatoid arthritis
     Dosage: PATIENT ROA - INTRAVENOUS (NOT OTHERWISE SPECIFIED)
  99. SULFASALAZINE [Suspect]
     Active Substance: SULFASALAZINE
     Indication: Rheumatoid arthritis
     Dosage: PATIENT ROA - SUBCUTANEOUS
  100. SULFASALAZINE [Suspect]
     Active Substance: SULFASALAZINE
  101. SULFASALAZINE [Suspect]
     Active Substance: SULFASALAZINE
  102. SULFASALAZINE [Suspect]
     Active Substance: SULFASALAZINE
  103. SULFASALAZINE [Suspect]
     Active Substance: SULFASALAZINE
     Dosage: PATIENT ROA  - SUBCUTANEOUS
  104. DICLOFENAC SODIUM [Suspect]
     Active Substance: DICLOFENAC SODIUM
     Indication: Product used for unknown indication
  105. LEFLUNOMIDE [Suspect]
     Active Substance: LEFLUNOMIDE
     Indication: Rheumatoid arthritis
  106. LEFLUNOMIDE [Suspect]
     Active Substance: LEFLUNOMIDE
  107. LEFLUNOMIDE [Suspect]
     Active Substance: LEFLUNOMIDE
  108. LEFLUNOMIDE [Suspect]
     Active Substance: LEFLUNOMIDE
  109. LEFLUNOMIDE [Suspect]
     Active Substance: LEFLUNOMIDE
  110. LEFLUNOMIDE [Suspect]
     Active Substance: LEFLUNOMIDE
  111. GOLD SODIUM THIOMALATE [Suspect]
     Active Substance: GOLD SODIUM THIOMALATE
     Indication: Product used for unknown indication
     Route: 016
  112. SULFAMETHOXAZOLE\TRIMETHOPRIM [Suspect]
     Active Substance: SULFAMETHOXAZOLE\TRIMETHOPRIM
     Indication: Product used for unknown indication
  113. TRAMADOL HYDROCHLORIDE [Suspect]
     Active Substance: TRAMADOL HYDROCHLORIDE
     Indication: Rheumatoid arthritis
  114. TRAMADOL HYDROCHLORIDE [Suspect]
     Active Substance: TRAMADOL HYDROCHLORIDE
  115. DICLOFENAC POTASSIUM [Suspect]
     Active Substance: DICLOFENAC POTASSIUM
     Indication: Product used for unknown indication
  116. ACETAMINOPHEN [Suspect]
     Active Substance: ACETAMINOPHEN
     Indication: Product used for unknown indication
  117. LEFLUNOMIDE [Suspect]
     Active Substance: LEFLUNOMIDE
     Indication: Product used for unknown indication
  118. PREDNISONE [Suspect]
     Active Substance: PREDNISONE
     Indication: Product used for unknown indication
     Route: 048
  119. ARAVA [Suspect]
     Active Substance: LEFLUNOMIDE
     Indication: Product used for unknown indication
  120. AZATHIOPRINE [Suspect]
     Active Substance: AZATHIOPRINE
     Indication: Product used for unknown indication
  121. AZATHIOPRINE [Suspect]
     Active Substance: AZATHIOPRINE
  122. BOTULINUM TOXIN TYPE A [Suspect]
     Active Substance: BOTULINUM TOXIN TYPE A
     Indication: Product used for unknown indication
  123. BUTRANS [Suspect]
     Active Substance: BUPRENORPHINE
     Indication: Product used for unknown indication
  124. CALCIUM ASCORBATE [Suspect]
     Active Substance: CALCIUM ASCORBATE
     Indication: Product used for unknown indication
  125. CALCIUM CARBONATE\CHOLECALCIFEROL [Suspect]
     Active Substance: CALCIUM CARBONATE\CHOLECALCIFEROL
     Indication: Product used for unknown indication
  126. CALCIUM CITRATE [Suspect]
     Active Substance: CALCIUM CITRATE
     Indication: Product used for unknown indication
  127. CELECOXIB [Suspect]
     Active Substance: CELECOXIB
     Indication: Product used for unknown indication
  128. CHLORHEXIDINE GLUCONATE [Suspect]
     Active Substance: CHLORHEXIDINE GLUCONATE
     Indication: Product used for unknown indication
  129. CHLORHEXIDINE GLUCONATE [Suspect]
     Active Substance: CHLORHEXIDINE GLUCONATE
  130. CHLORHEXIDINE GLUCONATE [Suspect]
     Active Substance: CHLORHEXIDINE GLUCONATE
     Indication: Product used for unknown indication
     Route: 065
  131. COSENTYX [Suspect]
     Active Substance: SECUKINUMAB
     Indication: Psoriatic arthropathy
     Dosage: PATIENT ROA - UNKNOWN
  132. COSENTYX [Suspect]
     Active Substance: SECUKINUMAB
  133. COSENTYX [Suspect]
     Active Substance: SECUKINUMAB
  134. COSENTYX [Suspect]
     Active Substance: SECUKINUMAB
  135. COSENTYX [Suspect]
     Active Substance: SECUKINUMAB
  136. COSENTYX [Suspect]
     Active Substance: SECUKINUMAB
  137. DESOGESTREL\ETHINYL ESTRADIOL [Concomitant]
     Active Substance: DESOGESTREL\ETHINYL ESTRADIOL
     Indication: Product used for unknown indication
  138. DOMPERIDONE MALEATE [Suspect]
     Active Substance: DOMPERIDONE MALEATE
     Indication: Product used for unknown indication
  139. ERENUMAB-AOOE [Suspect]
     Active Substance: ERENUMAB-AOOE
     Indication: Migraine
     Route: 058
  140. FOLIC ACID [Suspect]
     Active Substance: FOLIC ACID
     Indication: Product used for unknown indication
  141. FOSAMAX [Suspect]
     Active Substance: ALENDRONATE SODIUM
     Indication: Product used for unknown indication
  142. GOLD [Suspect]
     Active Substance: GOLD
     Indication: Product used for unknown indication
  143. HAIR KERATIN AMINO ACIDS GOLD COMPLEX [Suspect]
     Active Substance: HAIR KERATIN AMINO ACIDS GOLD COMPLEX
     Indication: Product used for unknown indication
  144. GOLD SODIUM THIOMALATE [Suspect]
     Active Substance: GOLD SODIUM THIOMALATE
     Indication: Product used for unknown indication
  145. HYDROCORTISONE BUTYRATE [Suspect]
     Active Substance: HYDROCORTISONE BUTYRATE
     Indication: Product used for unknown indication
  146. HYDROCORTISONE PROBUTATE [Suspect]
     Active Substance: HYDROCORTISONE PROBUTATE
     Indication: Product used for unknown indication
  147. HYDROXYCHLOROQUINE [Suspect]
     Active Substance: HYDROXYCHLOROQUINE
     Indication: Product used for unknown indication
  148. INFLIXIMAB [Suspect]
     Active Substance: INFLIXIMAB
     Indication: Rheumatoid arthritis
  149. INFLIXIMAB [Suspect]
     Active Substance: INFLIXIMAB
  150. INFLIXIMAB [Suspect]
     Active Substance: INFLIXIMAB
  151. INFLIXIMAB [Suspect]
     Active Substance: INFLIXIMAB
  152. INFLIXIMAB [Suspect]
     Active Substance: INFLIXIMAB
  153. INFLIXIMAB [Suspect]
     Active Substance: INFLIXIMAB
  154. INFLIXIMAB [Suspect]
     Active Substance: INFLIXIMAB
  155. INFLIXIMAB [Suspect]
     Active Substance: INFLIXIMAB
  156. INFLIXIMAB [Suspect]
     Active Substance: INFLIXIMAB
  157. INFLIXIMAB [Suspect]
     Active Substance: INFLIXIMAB
  158. ISOPROPYL ALCOHOL [Suspect]
     Active Substance: ISOPROPYL ALCOHOL
     Indication: Product used for unknown indication
  159. KEVZARA [Suspect]
     Active Substance: SARILUMAB
     Indication: Product used for unknown indication
  160. METHOTREXATE [Suspect]
     Active Substance: METHOTREXATE
     Indication: Rheumatoid arthritis
     Dosage: DOSE FORM - SOLUTION INTRA- ARTERIAL
     Route: 058
  161. MINOCYCLINE HYDROCHLORIDE [Suspect]
     Active Substance: MINOCYCLINE HYDROCHLORIDE
     Indication: Product used for unknown indication
  162. MYOCHRYSINE [Suspect]
     Active Substance: GOLD SODIUM THIOMALATE
     Indication: Rheumatoid arthritis
  163. MYOCHRYSINE [Suspect]
     Active Substance: GOLD SODIUM THIOMALATE
     Indication: Rheumatoid arthritis
  164. MYOCHRYSINE [Suspect]
     Active Substance: GOLD SODIUM THIOMALATE
  165. MYOCHRYSINE [Suspect]
     Active Substance: GOLD SODIUM THIOMALATE
  166. MYOCHRYSINE [Suspect]
     Active Substance: GOLD SODIUM THIOMALATE
  167. MYOCHRYSINE [Suspect]
     Active Substance: GOLD SODIUM THIOMALATE
  168. MYOCHRYSINE [Suspect]
     Active Substance: GOLD SODIUM THIOMALATE
     Dosage: PATIENT ROA - ORAL
  169. MYOCHRYSINE [Suspect]
     Active Substance: GOLD SODIUM THIOMALATE
  170. MYOCHRYSINE [Suspect]
     Active Substance: GOLD SODIUM THIOMALATE
  171. MYOCHRYSINE [Suspect]
     Active Substance: GOLD SODIUM THIOMALATE
     Dosage: PATIENT ROA - ORAL
  172. MYOCHRYSINE [Suspect]
     Active Substance: GOLD SODIUM THIOMALATE
  173. MYOCHRYSINE [Suspect]
     Active Substance: GOLD SODIUM THIOMALATE
  174. MYOCHRYSINE [Suspect]
     Active Substance: GOLD SODIUM THIOMALATE
  175. MYOCHRYSINE [Suspect]
     Active Substance: GOLD SODIUM THIOMALATE
  176. MYOCHRYSINE [Suspect]
     Active Substance: GOLD SODIUM THIOMALATE
  177. MYOCHRYSINE [Suspect]
     Active Substance: GOLD SODIUM THIOMALATE
  178. MYOCHRYSINE [Suspect]
     Active Substance: GOLD SODIUM THIOMALATE
  179. MYOCHRYSINE [Suspect]
     Active Substance: GOLD SODIUM THIOMALATE
  180. MYOCHRYSINE [Suspect]
     Active Substance: GOLD SODIUM THIOMALATE
  181. NAPROXEN [Concomitant]
     Active Substance: NAPROXEN
     Indication: Product used for unknown indication
  182. NAPROXEN SODIUM [Suspect]
     Active Substance: NAPROXEN SODIUM
     Indication: Product used for unknown indication
  183. NUCALA [Suspect]
     Active Substance: MEPOLIZUMAB
     Indication: Product used for unknown indication
  184. NUCALA [Suspect]
     Active Substance: MEPOLIZUMAB
  185. NUCALA [Suspect]
     Active Substance: MEPOLIZUMAB
     Dosage: PATIENT ROA - ORAL
  186. NUCALA [Suspect]
     Active Substance: MEPOLIZUMAB
  187. NUCALA [Suspect]
     Active Substance: MEPOLIZUMAB
  188. NUCALA [Suspect]
     Active Substance: MEPOLIZUMAB
  189. NUCALA [Suspect]
     Active Substance: MEPOLIZUMAB
  190. NUCALA [Suspect]
     Active Substance: MEPOLIZUMAB
  191. NUCALA [Suspect]
     Active Substance: MEPOLIZUMAB
  192. NUCALA [Suspect]
     Active Substance: MEPOLIZUMAB
  193. NUCALA [Suspect]
     Active Substance: MEPOLIZUMAB
     Dosage: PATIENT ROA - ORAL
  194. NUCALA [Suspect]
     Active Substance: MEPOLIZUMAB
  195. NUCALA [Suspect]
     Active Substance: MEPOLIZUMAB
  196. NUCALA [Suspect]
     Active Substance: MEPOLIZUMAB
  197. NUCALA [Suspect]
     Active Substance: MEPOLIZUMAB
  198. NUCALA [Suspect]
     Active Substance: MEPOLIZUMAB
  199. NUCALA [Suspect]
     Active Substance: MEPOLIZUMAB
  200. NUCALA [Suspect]
     Active Substance: MEPOLIZUMAB
  201. NUCALA [Suspect]
     Active Substance: MEPOLIZUMAB
  202. NUCALA [Suspect]
     Active Substance: MEPOLIZUMAB
  203. NUCALA [Suspect]
     Active Substance: MEPOLIZUMAB
  204. NUCALA [Suspect]
     Active Substance: MEPOLIZUMAB
  205. NUCALA [Suspect]
     Active Substance: MEPOLIZUMAB
  206. ORENCIA [Suspect]
     Active Substance: ABATACEPT
     Indication: Rheumatoid arthritis
  207. ORENCIA [Suspect]
     Active Substance: ABATACEPT
  208. ORENCIA [Suspect]
     Active Substance: ABATACEPT
  209. ORENCIA [Suspect]
     Active Substance: ABATACEPT
  210. OTEZLA [Suspect]
     Active Substance: APREMILAST
     Indication: Product used for unknown indication
  211. OXYCODONE [Suspect]
     Active Substance: OXYCODONE
     Indication: Product used for unknown indication
  212. OXYCODONE [Suspect]
     Active Substance: OXYCODONE
  213. PREDNISONE [Suspect]
     Active Substance: PREDNISONE
     Indication: Rheumatoid arthritis
  214. RAMIPRIL [Suspect]
     Active Substance: RAMIPRIL
     Indication: Off label use
     Route: 016
  215. REMICADE [Suspect]
     Active Substance: INFLIXIMAB
     Indication: Product used for unknown indication
  216. RITUXIMAB [Suspect]
     Active Substance: RITUXIMAB
     Indication: Rheumatoid arthritis
     Dosage: PATIENT ROA - UNKNOWN
  217. RITUXIMAB [Suspect]
     Active Substance: RITUXIMAB
  218. RITUXIMAB [Suspect]
     Active Substance: RITUXIMAB
  219. RITUXIMAB [Suspect]
     Active Substance: RITUXIMAB
     Dosage: PATIENT ROA - UNKNOWN
  220. RITUXIMAB [Suspect]
     Active Substance: RITUXIMAB
  221. RITUXIMAB [Suspect]
     Active Substance: RITUXIMAB
  222. RITUXIMAB [Suspect]
     Active Substance: RITUXIMAB
  223. RITUXIMAB [Suspect]
     Active Substance: RITUXIMAB
     Dosage: PATIENT ROA - INTRAVENOUS BOLUS
  224. RITUXIMAB [Suspect]
     Active Substance: RITUXIMAB
     Dosage: PATIENT ROA - UNKNOWN
  225. RITUXIMAB [Suspect]
     Active Substance: RITUXIMAB
     Dosage: PATIENT ROA -  INTRAVENOUS (NOT OTHERWISE SPECIFIED)
  226. RITUXIMAB [Suspect]
     Active Substance: RITUXIMAB
  227. RITUXIMAB [Suspect]
     Active Substance: RITUXIMAB
  228. RITUXIMAB [Suspect]
     Active Substance: RITUXIMAB
  229. RITUXIMAB [Suspect]
     Active Substance: RITUXIMAB
     Dosage: PATIENT ROA - UNKNOWN
  230. RITUXIMAB [Suspect]
     Active Substance: RITUXIMAB
     Dosage: PATIENT ROA - UNKNOWN
  231. RITUXIMAB [Suspect]
     Active Substance: RITUXIMAB
  232. RITUXIMAB [Suspect]
     Active Substance: RITUXIMAB
     Dosage: PATIENT ROA - UNKNOWN
  233. RITUXIMAB [Suspect]
     Active Substance: RITUXIMAB
  234. RITUXIMAB [Suspect]
     Active Substance: RITUXIMAB
  235. RITUXIMAB [Suspect]
     Active Substance: RITUXIMAB
  236. RITUXIMAB [Suspect]
     Active Substance: RITUXIMAB
  237. RITUXIMAB [Suspect]
     Active Substance: RITUXIMAB
  238. RITUXIMAB [Suspect]
     Active Substance: RITUXIMAB
  239. RITUXIMAB [Suspect]
     Active Substance: RITUXIMAB
  240. RITUXIMAB [Suspect]
     Active Substance: RITUXIMAB
  241. RITUXIMAB [Suspect]
     Active Substance: RITUXIMAB
     Dosage: PATIENT ROA- UNKNOWN
  242. RITUXIMAB [Suspect]
     Active Substance: RITUXIMAB
     Dosage: PATIENT ROA- INTRAVENOUS (NOT OTHERWISE SPECIFIED)
  243. RITUXIMAB [Suspect]
     Active Substance: RITUXIMAB
     Dosage: PATIENT ROA- INTRAVENOUS (NOT OTHERWISE SPECIFIED)
  244. RITUXIMAB [Suspect]
     Active Substance: RITUXIMAB
  245. RITUXIMAB [Suspect]
     Active Substance: RITUXIMAB
  246. RITUXIMAB [Suspect]
     Active Substance: RITUXIMAB
     Dosage: PATIENT ROA - INTRAVENOUS (NOT OTHERWISE SPECIFIED)
  247. RITUXIMAB [Suspect]
     Active Substance: RITUXIMAB
  248. RITUXIMAB [Suspect]
     Active Substance: RITUXIMAB
  249. SULFASALAZINE [Suspect]
     Active Substance: SULFASALAZINE
     Indication: Rheumatoid arthritis
     Route: 048
  250. HYDROCORTISONE [Suspect]
     Active Substance: HYDROCORTISONE
     Indication: Product used for unknown indication
  251. TOPIRAMATE [Suspect]
     Active Substance: TOPIRAMATE
     Indication: Product used for unknown indication
  252. SIMPONI [Suspect]
     Active Substance: GOLIMUMAB
     Indication: Rheumatoid arthritis
     Route: 048
  253. SIRUKUMAB [Suspect]
     Active Substance: SIRUKUMAB
     Indication: Rheumatoid arthritis
  254. SIRUKUMAB [Suspect]
     Active Substance: SIRUKUMAB
     Indication: Prostatic specific antigen
  255. SULFASALAZINE [Suspect]
     Active Substance: SULFASALAZINE
     Indication: Product used for unknown indication
  256. TOFACITINIB [Suspect]
     Active Substance: TOFACITINIB
     Indication: Product used for unknown indication
  257. VITAMIN C [Suspect]
     Active Substance: ASCORBIC ACID
     Indication: Product used for unknown indication
  258. TRIAMCINOLONE ACETONIDE [Suspect]
     Active Substance: TRIAMCINOLONE ACETONIDE
     Indication: Product used for unknown indication
  259. TRIAMCINOLONE ACETONIDE [Suspect]
     Active Substance: TRIAMCINOLONE ACETONIDE
  260. TRIAMCINOLONE ACETONIDE [Suspect]
     Active Substance: TRIAMCINOLONE ACETONIDE
  261. TRIAMCINOLONE ACETONIDE [Suspect]
     Active Substance: TRIAMCINOLONE ACETONIDE
  262. TRIAMCINOLONE ACETONIDE [Suspect]
     Active Substance: TRIAMCINOLONE ACETONIDE
  263. XELJANZ [Suspect]
     Active Substance: TOFACITINIB CITRATE
     Indication: Product used for unknown indication
  264. XELJANZ [Suspect]
     Active Substance: TOFACITINIB CITRATE
  265. XELJANZ [Suspect]
     Active Substance: TOFACITINIB CITRATE
  266. XELJANZ [Suspect]
     Active Substance: TOFACITINIB CITRATE
  267. XELJANZ [Suspect]
     Active Substance: TOFACITINIB CITRATE
  268. XELJANZ [Suspect]
     Active Substance: TOFACITINIB CITRATE
  269. XELJANZ [Suspect]
     Active Substance: TOFACITINIB CITRATE
  270. XELJANZ [Suspect]
     Active Substance: TOFACITINIB CITRATE
  271. XELJANZ [Suspect]
     Active Substance: TOFACITINIB CITRATE
  272. XELJANZ [Suspect]
     Active Substance: TOFACITINIB CITRATE
  273. XELJANZ [Suspect]
     Active Substance: TOFACITINIB CITRATE
  274. XELJANZ [Suspect]
     Active Substance: TOFACITINIB CITRATE
  275. XELJANZ [Suspect]
     Active Substance: TOFACITINIB CITRATE
  276. XELJANZ [Suspect]
     Active Substance: TOFACITINIB CITRATE
  277. XELJANZ [Suspect]
     Active Substance: TOFACITINIB CITRATE
  278. XELJANZ [Suspect]
     Active Substance: TOFACITINIB CITRATE
  279. XELJANZ [Suspect]
     Active Substance: TOFACITINIB CITRATE
  280. XELJANZ [Suspect]
     Active Substance: TOFACITINIB CITRATE
  281. XELJANZ [Suspect]
     Active Substance: TOFACITINIB CITRATE
  282. DICLOFENAC SODIUM [Suspect]
     Active Substance: DICLOFENAC SODIUM
     Indication: Product used for unknown indication

REACTIONS (10)
  - Arthralgia [Fatal]
  - Drug-induced liver injury [Fatal]
  - Arthropathy [Fatal]
  - Back injury [Fatal]
  - Blood cholesterol increased [Fatal]
  - Bursitis [Fatal]
  - Condition aggravated [Fatal]
  - Dyspepsia [Fatal]
  - Fall [Fatal]
  - Fatigue [Fatal]
